FAERS Safety Report 23738540 (Version 2)
Quarter: 2024Q2

REPORT INFORMATION
  Report Type: Report from Study
  Country: FR (occurrence: None)
  Receive Date: 20240412
  Receipt Date: 20240524
  Transmission Date: 20240716
  Serious: Yes (Death, Other)
  Sender: FDA-Public Use
  Company Number: 2024A086042

PATIENT
  Sex: Male
  Weight: 130 kg

DRUGS (2)
  1. IMFINZI [Suspect]
     Active Substance: DURVALUMAB
     Indication: HER2 positive biliary tract cancer
     Route: 042
     Dates: start: 20230328
  2. GEMCITABINE-CISPLATIN [Concomitant]
     Indication: Biliary tract disorder

REACTIONS (4)
  - Immune thrombocytopenia [Fatal]
  - Thrombocytopenia [Unknown]
  - Thrombocytopenia [Fatal]
  - Cerebral haemorrhage [Fatal]
